FAERS Safety Report 5488639-6 (Version None)
Quarter: 2007Q4

REPORT INFORMATION
  Report Type: 
  Country: None (occurrence: None)
  Receive Date: 20071017
  Receipt Date: 20070130
  Transmission Date: 20080405
  Serious: No
  Sender: FDA-Public Use
  Company Number: A0637649A

PATIENT
  Age: 6 Year
  Sex: Female

DRUGS (3)
  1. CEFTIN [Suspect]
     Dosage: 3TSP THREE TIMES PER DAY
     Route: 048
     Dates: start: 20070121, end: 20070125
  2. ALBUTEROL [Concomitant]
  3. FLOVENT [Concomitant]

REACTIONS (2)
  - DIARRHOEA [None]
  - OVERDOSE [None]
